FAERS Safety Report 10309239 (Version 3)
Quarter: 2014Q4

REPORT INFORMATION
  Report Type: Spontaneous
  Country: US (occurrence: None)
  Receive Date: 20140714
  Receipt Date: 20141002
  Transmission Date: 20150528
  Serious: Yes (Other)
  Sender: FDA-Public Use
  Company Number: UNT-2014-003445

PATIENT
  Age: 79 Year
  Sex: Male
  Weight: 59 kg

DRUGS (1)
  1. REMODULIN [Suspect]
     Active Substance: TREPROSTINIL
     Indication: PULMONARY ARTERIAL HYPERTENSION
     Dosage: 0.004 UG/KG, CONTINUING, IV DRIP
     Route: 041
     Dates: start: 20140624

REACTIONS (5)
  - Diarrhoea [None]
  - Pyrexia [None]
  - Oxygen saturation decreased [None]
  - Dyspnoea [None]
  - Injection site rash [None]

NARRATIVE: CASE EVENT DATE: 2014
